FAERS Safety Report 7500185-4 (Version None)
Quarter: 2011Q2

REPORT INFORMATION
  Report Type: 
  Country: None (occurrence: None)
  Receive Date: 20110524
  Receipt Date: 20100414
  Transmission Date: 20111010
  Serious: No
  Sender: FDA-Public Use
  Company Number: US-NOVEN-ALL1-2010-02244

PATIENT

DRUGS (2)
  1. RISPERIDONE [Concomitant]
     Dosage: .5 MG, 1X/DAY:QD
     Route: 048
  2. DAYTRANA [Suspect]
     Dosage: 20 MG, 1X/DAY:QD (TWO PATCHES DAILY)
     Route: 062
     Dates: start: 20090101

REACTIONS (5)
  - DRUG INEFFECTIVE [None]
  - DRUG PRESCRIBING ERROR [None]
  - OVERDOSE [None]
  - DECREASED APPETITE [None]
  - INCORRECT DRUG ADMINISTRATION DURATION [None]
